FAERS Safety Report 4927974-4 (Version None)
Quarter: 2006Q1

REPORT INFORMATION
  Report Type: 
  Country: None (occurrence: None)
  Receive Date: 20060131
  Receipt Date: 20050922
  Transmission Date: 20060701
  Serious: No
  Sender: FDA-Public Use
  Company Number: 200516727US

PATIENT
  Age: 40 Year
  Sex: Female
  Weight: 82 kg

DRUGS (1)
  1. KETEK [Suspect]
     Indication: INFECTION
     Dosage: 400MG PO
     Route: 048
     Dates: start: 20050919, end: 20050919

REACTIONS (1)
  - VISION BLURRED [None]
